FAERS Safety Report 8548452-X (Version None)
Quarter: 2012Q3

REPORT INFORMATION
  Report Type: 
  Country: None (occurrence: None)
  Receive Date: 20120719
  Receipt Date: 20120719
  Transmission Date: 20120928
  Serious: No
  Sender: FDA-Public Use
  Company Number: None

PATIENT
  Age: 55 Year
  Sex: Female
  Weight: 67.1324 kg

DRUGS (1)
  1. QUETIAPINE FUMARATE [Suspect]
     Indication: INSOMNIA
     Dosage: 200 MG 1 QHS PO
     Route: 048
     Dates: start: 20111018, end: 20120529

REACTIONS (1)
  - DRUG INEFFECTIVE [None]
